FAERS Safety Report 14031479 (Version 1)
Quarter: 2017Q4

REPORT INFORMATION
  Report Type: Spontaneous
  Country: US (occurrence: US)
  Receive Date: 20171002
  Receipt Date: 20171002
  Transmission Date: 20180321
  Serious: Yes (Other)
  Sender: FDA-Public Use
  Company Number: US-BAYER-2017-188217

PATIENT
  Sex: Female

DRUGS (1)
  1. MIRENA [Suspect]
     Active Substance: LEVONORGESTREL
     Dosage: 20 MCG/24HR, CONT
     Route: 015
     Dates: start: 2012

REACTIONS (6)
  - Genital haemorrhage [None]
  - Vaginal discharge [None]
  - Asthenia [None]
  - Pelvic pain [None]
  - Menstruation delayed [None]
  - Chills [None]

NARRATIVE: CASE EVENT DATE: 2017
